FAERS Safety Report 10408259 (Version 1)
Quarter: 2014Q3

REPORT INFORMATION
  Report Type: Report from Study
  Country: US (occurrence: US)
  Receive Date: 20140826
  Receipt Date: 20140826
  Transmission Date: 20150326
  Serious: Yes (Other)
  Sender: FDA-Public Use
  Company Number: US-ROCHE-1454490

PATIENT
  Age: 57 Year
  Sex: Female
  Weight: 50.39 kg

DRUGS (6)
  1. METHOTREXATE [Concomitant]
     Active Substance: METHOTREXATE
  2. RITUXAN [Suspect]
     Active Substance: RITUXIMAB
     Indication: SYSTEMIC LUPUS ERYTHEMATOSUS
     Route: 042
  3. SOLU-MEDROL [Concomitant]
     Active Substance: METHYLPREDNISOLONE SODIUM SUCCINATE
     Route: 042
  4. MEDROL [Concomitant]
     Active Substance: METHYLPREDNISOLONE
  5. BENADRYL [Concomitant]
     Active Substance: DIPHENHYDRAMINE HYDROCHLORIDE
     Indication: PREMEDICATION
     Dosage: REACTION
     Route: 040
     Dates: start: 20120413, end: 20120413
  6. SOLU-MEDROL [Concomitant]
     Active Substance: METHYLPREDNISOLONE SODIUM SUCCINATE
     Route: 040
     Dates: start: 20120413, end: 20120413

REACTIONS (6)
  - Pruritus [Unknown]
  - Pruritus [Recovered/Resolved]
  - Urticaria [Unknown]
  - Paraesthesia [Recovered/Resolved]
  - Ear pruritus [Recovered/Resolved]
  - Hypoaesthesia [Recovered/Resolved]

NARRATIVE: CASE EVENT DATE: 20120413
